FAERS Safety Report 6233172-7 (Version None)
Quarter: 2009Q2

REPORT INFORMATION
  Report Type: 
  Country: None (occurrence: None)
  Receive Date: 20090617
  Receipt Date: 20090610
  Transmission Date: 20091009
  Serious: Yes (Hospitalization)
  Sender: FDA-Public Use
  Company Number: JP-ELI_LILLY_AND_COMPANY-JP200906003167

PATIENT
  Age: 63 Year
  Sex: Female

DRUGS (1)
  1. GEMZAR [Suspect]
     Indication: PANCREATIC CARCINOMA RESECTABLE
     Route: 042
     Dates: start: 20080101

REACTIONS (3)
  - ADVERSE DRUG REACTION [None]
  - DEPRESSIVE SYMPTOM [None]
  - HEPATIC STEATOSIS [None]
